FAERS Safety Report 17191899 (Version 1)
Quarter: 2019Q4

REPORT INFORMATION
  Report Type: Spontaneous
  Country: US (occurrence: US)
  Receive Date: 20191223
  Receipt Date: 20191223
  Transmission Date: 20200122
  Serious: Yes (Death)
  Sender: FDA-Public Use
  Company Number: US-PFIZER INC-2019446622

PATIENT
  Age: 58 Year
  Sex: Male

DRUGS (1)
  1. DETROL LA [Suspect]
     Active Substance: TOLTERODINE TARTRATE
     Dosage: 4 MG, DAILY(STRENGTH: 4 MG, 24 CAPSULE, QUANTITY FOR 90 DAYS: 90)

REACTIONS (1)
  - Death [Fatal]
